FAERS Safety Report 7771248-3 (Version None)
Quarter: 2011Q3

REPORT INFORMATION
  Report Type: 
  Country: None (occurrence: None)
  Receive Date: 20110922
  Receipt Date: 20110907
  Transmission Date: 20111222
  Serious: Yes (Hospitalization)
  Sender: FDA-Public Use
  Company Number: DE-JNJFOC-20110800206

PATIENT
  Age: 71 Year
  Sex: Male
  Weight: 120 kg

DRUGS (12)
  1. CHLORPROTHIXEN [Interacting]
     Indication: PRODUCT USED FOR UNKNOWN INDICATION
     Route: 065
  2. RISPERDAL [Suspect]
     Indication: PRODUCT USED FOR UNKNOWN INDICATION
     Route: 048
  3. RISPERDAL [Suspect]
     Route: 048
     Dates: start: 20110713, end: 20110722
  4. TORSEMIDE [Interacting]
     Indication: PRODUCT USED FOR UNKNOWN INDICATION
     Route: 065
  5. RISPERDAL [Suspect]
     Route: 048
     Dates: start: 20110723
  6. RISPERDAL [Suspect]
     Route: 048
     Dates: start: 20110709, end: 20110712
  7. MARCUMAR [Interacting]
     Indication: PRODUCT USED FOR UNKNOWN INDICATION
     Route: 065
  8. METOPROLOL [Interacting]
     Indication: PRODUCT USED FOR UNKNOWN INDICATION
     Route: 065
  9. LACTULOSE [Interacting]
     Indication: PRODUCT USED FOR UNKNOWN INDICATION
     Route: 065
  10. MAGNESIUM [Interacting]
     Indication: PRODUCT USED FOR UNKNOWN INDICATION
     Route: 065
  11. DICLOFENAC [Interacting]
     Indication: PRODUCT USED FOR UNKNOWN INDICATION
     Route: 065
  12. PANTOPRAZOLE [Interacting]
     Indication: PRODUCT USED FOR UNKNOWN INDICATION
     Route: 065

REACTIONS (7)
  - SENSORY DISTURBANCE [None]
  - DRUG LEVEL DECREASED [None]
  - TREATMENT NONCOMPLIANCE [None]
  - DRUG INTERACTION [None]
  - HALLUCINATION, OLFACTORY [None]
  - SUICIDAL IDEATION [None]
  - BLOOD GLUCOSE INCREASED [None]
